FAERS Safety Report 19950482 (Version 2)
Quarter: 2023Q1

REPORT INFORMATION
  Report Type: Report from Study
  Country: DE (occurrence: DE)
  Receive Date: 20211013
  Receipt Date: 20230217
  Transmission Date: 20230417
  Serious: Yes (Other)
  Sender: FDA-Public Use
  Company Number: DE-SUN PHARMACEUTICAL INDUSTRIES LTD-2021R1-314316

PATIENT
  Age: 71 Year
  Sex: Male

DRUGS (5)
  1. ETORICOXIB [Suspect]
     Active Substance: ETORICOXIB
     Indication: Hodgkin^s disease
     Dosage: 60 MILLIGRAM, DAILY
     Route: 048
  2. DEXAMETHASONE [Suspect]
     Active Substance: DEXAMETHASONE
     Indication: Hodgkin^s disease
     Dosage: 0.5 MILLIGRAM, DAILY
     Route: 048
  3. PIOGLITAZONE [Suspect]
     Active Substance: PIOGLITAZONE
     Indication: Hodgkin^s disease
     Dosage: 45 MILLIGRAM, DAILY
     Route: 048
  4. EVEROLIMUS [Suspect]
     Active Substance: EVEROLIMUS
     Indication: Hodgkin^s disease
     Dosage: 15 MILLIGRAM, DAILY
     Route: 048
  5. TREOSULFAN [Suspect]
     Active Substance: TREOSULFAN
     Indication: Hodgkin^s disease
     Dosage: 250 MILLIGRAM, DAILY
     Route: 048

REACTIONS (1)
  - Disease progression [Unknown]
